FAERS Safety Report 10307190 (Version 3)
Quarter: 2014Q3

REPORT INFORMATION
  Report Type: Spontaneous
  Country: JP (occurrence: JP)
  Receive Date: 20140716
  Receipt Date: 20140927
  Transmission Date: 20150326
  Serious: Yes (Death, Hospitalization)
  Sender: FDA-Public Use
  Company Number: JP-AMGEN-JPNSP2014052432

PATIENT
  Age: 60 Year
  Sex: Female
  Weight: 50 kg

DRUGS (15)
  1. DENOTAS [Concomitant]
     Active Substance: CALCIUM CARBONATE\CHOLECALCIFEROL\MAGNESIUM CARBONATE
     Indication: HYPOCALCAEMIA
     Dosage: UNK, QD
     Route: 048
     Dates: start: 20140625, end: 20140627
  2. TS-1 [Concomitant]
     Active Substance: GIMERACIL\OTERACIL POTASSIUM\TEGAFUR
     Indication: BREAST CANCER
     Dosage: 40 MG, BID
     Route: 048
     Dates: start: 20111129, end: 20140627
  3. OXYCONTIN [Concomitant]
     Active Substance: OXYCODONE HYDROCHLORIDE
     Indication: CANCER PAIN
     Dosage: 30 MG, BID
     Route: 048
     Dates: start: 20110413, end: 20140627
  4. MAGMITT [Concomitant]
     Active Substance: MAGNESIUM OXIDE
     Indication: CONSTIPATION
     Dosage: 330 MG, TID
     Route: 048
     Dates: start: 20110625, end: 20140627
  5. PROTECADIN [Concomitant]
     Active Substance: LAFUTIDINE
     Indication: GASTRITIS PROPHYLAXIS
     Dosage: 10 MG, BID
     Route: 048
     Dates: start: 20111108, end: 20140627
  6. RANMARK [Suspect]
     Active Substance: DENOSUMAB
     Indication: METASTASES TO BONE
     Dosage: 120 MG, UNK
     Route: 058
     Dates: start: 20140625
  7. LYRICA [Concomitant]
     Active Substance: PREGABALIN
     Indication: CANCER PAIN
     Dosage: 150 MG, BID
     Route: 048
     Dates: start: 20110413, end: 20140627
  8. HYPEN                              /00613801/ [Concomitant]
     Active Substance: ETODOLAC
     Indication: CANCER PAIN
     Dosage: 200 MG, BID
     Route: 048
     Dates: start: 20110413, end: 20140627
  9. LAXOBERON [Concomitant]
     Active Substance: SODIUM PICOSULFATE
     Indication: CONSTIPATION
     Dosage: 7.5 MG, QD
     Route: 048
     Dates: start: 20110413, end: 20140627
  10. DENOTAS [Concomitant]
     Active Substance: CALCIUM CARBONATE\CHOLECALCIFEROL\MAGNESIUM CARBONATE
     Indication: PROPHYLAXIS
  11. OXYCODONE [Concomitant]
     Active Substance: OXYCODONE
     Indication: CANCER PAIN
     Dosage: 48 MG, QD
     Route: 058
     Dates: start: 20140627, end: 20140709
  12. OXINORM                            /00045603/ [Concomitant]
     Indication: CANCER PAIN
     Dosage: 10 MG, UNK
     Route: 048
     Dates: start: 20110413, end: 20140627
  13. PANTOSIN [Concomitant]
     Active Substance: PANTETHINE
     Indication: GASTROINTESTINAL DISORDER
     Dosage: 60 MG, TID
     Route: 048
     Dates: start: 20110413, end: 20140627
  14. ACETAMINOPHEN. [Concomitant]
     Active Substance: ACETAMINOPHEN
     Indication: PYREXIA
     Dosage: 1000 MG, BID
     Route: 042
     Dates: start: 20140629, end: 20140709
  15. ELNEOPA NO.1 [Concomitant]
     Indication: NUTRITIONAL SUPPLEMENTATION
     Dosage: 1500 ML, QD
     Route: 042
     Dates: start: 20140629, end: 20140709

REACTIONS (5)
  - Blood calcium decreased [Unknown]
  - Dyskinesia [Not Recovered/Not Resolved]
  - Disseminated intravascular coagulation [Fatal]
  - Pyrexia [Not Recovered/Not Resolved]
  - Pain [Not Recovered/Not Resolved]

NARRATIVE: CASE EVENT DATE: 20140626
